FAERS Safety Report 9180777 (Version 1)
Quarter: 2013Q1

REPORT INFORMATION
  Report Type: Spontaneous
  Country: US (occurrence: None)
  Receive Date: 20130320
  Receipt Date: 20130320
  Transmission Date: 20140127
  Serious: Yes (Other)
  Sender: FDA-Public Use
  Company Number: AUR-APL-2013-02274

PATIENT
  Age: 46 Year
  Sex: Female

DRUGS (1)
  1. LEVETIRACETAM [Suspect]
     Indication: EPILEPSY
     Dosage: UNKNOWN

REACTIONS (12)
  - Anticonvulsant drug level below therapeutic [None]
  - Dyskinesia [None]
  - Dystonia [None]
  - Paraneoplastic syndrome [None]
  - Antinuclear antibody positive [None]
  - Vitiligo [None]
  - Autoimmune disorder [None]
  - Drug hypersensitivity [None]
  - Dysphonia [None]
  - Torticollis [None]
  - Gait disturbance [None]
  - Athetosis [None]
